FAERS Safety Report 4334164-5 (Version None)
Quarter: 2004Q2

REPORT INFORMATION
  Report Type: 
  Country: None (occurrence: None)
  Receive Date: 20040402
  Receipt Date: 20040325
  Transmission Date: 20050107
  Serious: Yes (Other)
  Sender: FDA-Public Use
  Company Number: 2004-03-1821

PATIENT
  Sex: Male

DRUGS (4)
  1. PEG-INTERFERON ALFA-2B INJECTABLE POWDER [Suspect]
     Indication: CHRONIC HEPATITIS
     Dosage: SEE IMAGE SUBCUTANEOUS
     Route: 058
     Dates: start: 20031101
  2. PEG-INTERFERON ALFA-2B INJECTABLE POWDER [Suspect]
     Indication: CHRONIC HEPATITIS
     Dosage: SEE IMAGE SUBCUTANEOUS
     Route: 058
     Dates: start: 20031101
  3. RIBAVIRIN [Suspect]
     Indication: CHRONIC HEPATITIS
     Dosage: SEE IMAGE ORAL
     Route: 048
     Dates: start: 20031101
  4. RIBAVIRIN [Suspect]
     Indication: CHRONIC HEPATITIS
     Dosage: SEE IMAGE ORAL
     Route: 048
     Dates: start: 20031101

REACTIONS (4)
  - CEREBROVASCULAR ACCIDENT [None]
  - CONSTIPATION [None]
  - NEUTROPHIL COUNT DECREASED [None]
  - PLATELET COUNT DECREASED [None]
